FAERS Safety Report 16261636 (Version 4)
Quarter: 2019Q4

REPORT INFORMATION
  Report Type: Spontaneous
  Country: US (occurrence: US)
  Receive Date: 20190501
  Receipt Date: 20191029
  Transmission Date: 20200122
  Serious: Yes (Other)
  Sender: FDA-Public Use
  Company Number: US-ASTRAZENECA-2019SE10109

PATIENT
  Sex: Female
  Weight: 75.8 kg

DRUGS (20)
  1. NEXIUM [Suspect]
     Active Substance: ESOMEPRAZOLE MAGNESIUM
     Route: 048
  2. VICODIN [Concomitant]
     Active Substance: ACETAMINOPHEN\HYDROCODONE BITARTRATE
  3. LEVOTHYROXINE. [Concomitant]
     Active Substance: LEVOTHYROXINE
  4. CLONIDINE. [Concomitant]
     Active Substance: CLONIDINE
  5. PREDNISONE. [Concomitant]
     Active Substance: PREDNISONE
  6. RENVELA [Concomitant]
     Active Substance: SEVELAMER CARBONATE
  7. NEXIUM [Suspect]
     Active Substance: ESOMEPRAZOLE MAGNESIUM
     Dosage: FOR VARIOUS DATES AND YEARS PRIOR TO AND/OR INCLUDING THE DATES OF PLAINTIFF^S INJURY OR INJURIES
     Route: 048
  8. CYMBALTA [Concomitant]
     Active Substance: DULOXETINE HYDROCHLORIDE
  9. COLACE [Concomitant]
     Active Substance: DOCUSATE SODIUM
  10. OXYCODONE [Concomitant]
     Active Substance: OXYCODONE
  11. DULOXETINE. [Concomitant]
     Active Substance: DULOXETINE
  12. DEXILANT [Suspect]
     Active Substance: DEXLANSOPRAZOLE
     Dosage: FOR VARIOUS DATES AND YEARS PRIOR TO AND/OR INCLUDING THE DATES OF PLAINTIFF^S INJURY OR INJURIES
     Route: 065
  13. HYDROXYZINE [Concomitant]
     Active Substance: HYDROXYZINE HYDROCHLORIDE
  14. ONDANSETRON [Concomitant]
     Active Substance: ONDANSETRON
  15. ALPRAZOLAM. [Concomitant]
     Active Substance: ALPRAZOLAM
  16. PRAVASTATIN. [Concomitant]
     Active Substance: PRAVASTATIN
  17. CALCITRIOL. [Concomitant]
     Active Substance: CALCITRIOL
  18. VENLAFAXINE [Concomitant]
     Active Substance: VENLAFAXINE HYDROCHLORIDE
  19. LABETALOL [Concomitant]
     Active Substance: LABETALOL\LABETALOL HYDROCHLORIDE
  20. TACROLIMUS. [Concomitant]
     Active Substance: TACROLIMUS

REACTIONS (8)
  - Chronic kidney disease [Unknown]
  - Renal injury [Unknown]
  - Nephrogenic anaemia [Unknown]
  - End stage renal disease [Unknown]
  - Rebound acid hypersecretion [Unknown]
  - Hyperparathyroidism secondary [Unknown]
  - Renal failure [Unknown]
  - Acute kidney injury [Unknown]
